FAERS Safety Report 4328025-5 (Version None)
Quarter: 2004Q1

REPORT INFORMATION
  Report Type: 
  Country: None (occurrence: None)
  Receive Date: 20040325
  Receipt Date: 20040309
  Transmission Date: 20041129
  Serious: Yes (Other)
  Sender: FDA-Public Use
  Company Number: US-JNJFOC-20031003154

PATIENT
  Age: 73 Year
  Sex: Male
  Weight: 95.709 kg

DRUGS (3)
  1. ULTRAM [Suspect]
     Indication: BACK PAIN
     Dosage: 50 MG, 2 IN 2 DAY
     Dates: start: 20010101
  2. ELAVIL [Suspect]
     Indication: DEPRESSION
     Dosage: 100 MG, 1 IN 1 DAY
     Dates: start: 20031009
  3. TENORMIN [Concomitant]

REACTIONS (9)
  - CONVULSION [None]
  - DYSARTHRIA [None]
  - EYE ROLLING [None]
  - LOSS OF CONSCIOUSNESS [None]
  - MEDICATION ERROR [None]
  - MUSCLE RIGIDITY [None]
  - OVERDOSE [None]
  - TREATMENT NONCOMPLIANCE [None]
  - URINARY INCONTINENCE [None]
